FAERS Safety Report 13265384 (Version 1)
Quarter: 2017Q1

REPORT INFORMATION
  Report Type: Report from Study
  Country: CZ (occurrence: CZ)
  Receive Date: 20170223
  Receipt Date: 20170223
  Transmission Date: 20170428
  Serious: Yes (Other)
  Sender: FDA-Public Use
  Company Number: CZ-CELGENEUS-CZE-2017022692

PATIENT
  Sex: Male

DRUGS (1)
  1. POMALIDOMIDE [Suspect]
     Active Substance: POMALIDOMIDE
     Indication: PLASMA CELL MYELOMA
     Route: 048

REACTIONS (15)
  - Diarrhoea [Unknown]
  - Fatigue [Unknown]
  - Febrile neutropenia [Unknown]
  - Decreased appetite [Unknown]
  - Neutropenia [Unknown]
  - Mobility decreased [Unknown]
  - Neuropathy peripheral [Unknown]
  - Infection [Unknown]
  - Nausea [Unknown]
  - Tremor [Unknown]
  - Pneumonia [Unknown]
  - Thrombocytopenia [Unknown]
  - Constipation [Unknown]
  - Thrombosis [Unknown]
  - Paresis [Unknown]

NARRATIVE: CASE EVENT DATE: 201407
